FAERS Safety Report 12255354 (Version 2)
Quarter: 2016Q2

REPORT INFORMATION
  Report Type: Spontaneous
  Country: JP (occurrence: JP)
  Receive Date: 20160412
  Receipt Date: 20160503
  Transmission Date: 20160815
  Serious: Yes (Other)
  Sender: FDA-Public Use
  Company Number: JP-ORION CORPORATION ORION PHARMA-ENT 2016-0050

PATIENT
  Age: 74 Year
  Sex: Male

DRUGS (1)
  1. COMTAN [Suspect]
     Active Substance: ENTACAPONE
     Indication: PARKINSON^S DISEASE
     Route: 048

REACTIONS (5)
  - Sleep phase rhythm disturbance [Unknown]
  - Delirium [Unknown]
  - Hypophagia [Unknown]
  - Blood pressure fluctuation [Unknown]
  - Dysphagia [Unknown]
